FAERS Safety Report 4595128-X (Version None)
Quarter: 2005Q1

REPORT INFORMATION
  Report Type: 
  Country: None (occurrence: None)
  Receive Date: 20050224
  Receipt Date: 20041116
  Transmission Date: 20050727
  Serious: Yes (Hospitalization)
  Sender: FDA-Public Use
  Company Number: GXKR2004US00750

PATIENT
  Age: 53 Year
  Sex: Male

DRUGS (3)
  1. MIRTAZAPINE [Suspect]
     Indication: MAJOR DEPRESSION
     Dosage: 45 MG, QD,
  2. OLANZAPINE (NGX) (OLANZAPINE) [Suspect]
     Indication: PSYCHOTIC DISORDER
     Dosage: 10 MG, QD,
  3. TRAMADOL HCL [Suspect]
     Indication: BACK PAIN
     Dosage: 150 MG, QD,

REACTIONS (2)
  - DRUG INTERACTION [None]
  - SEROTONIN SYNDROME [None]
